FAERS Safety Report 22160230 (Version 1)
Quarter: 2023Q1

REPORT INFORMATION
  Report Type: Spontaneous
  Country: AT (occurrence: AT)
  Receive Date: 20230331
  Receipt Date: 20230331
  Transmission Date: 20230417
  Serious: No
  Sender: FDA-Public Use
  Company Number: AT-drreddys-USA/AST/21/0134459

PATIENT
  Age: 52 Year
  Sex: Male

DRUGS (2)
  1. AZACITIDINE [Suspect]
     Active Substance: AZACITIDINE
     Indication: Myelodysplastic syndrome
     Dosage: 75 MG/M2 INJECTION DAILY FOR THE FIRST SEVEN DAYS OF A 28-DAY CYCLE
     Route: 058
     Dates: start: 201512
  2. AZACITIDINE [Suspect]
     Active Substance: AZACITIDINE
     Route: 042

REACTIONS (2)
  - Injection site haematoma [Unknown]
  - Injection site pruritus [Unknown]
